FAERS Safety Report 8496609-9 (Version None)
Quarter: 2012Q3

REPORT INFORMATION
  Report Type: 
  Country: None (occurrence: None)
  Receive Date: 20120709
  Receipt Date: 20120703
  Transmission Date: 20120928
  Serious: No
  Sender: FDA-Public Use
  Company Number: JP-PFIZER INC-2010022580

PATIENT
  Age: 10 Year
  Sex: Male
  Weight: 24.8 kg

DRUGS (3)
  1. GENOTROPIN [Suspect]
     Indication: DWARFISM
     Dosage: 6.0 MG, SIX TIME WEEK
     Dates: start: 20100303
  2. GENOTROPIN [Suspect]
     Indication: SMALL FOR DATES BABY
     Dosage: 6.0 MG, SIX TIME WEEK
     Route: 058
     Dates: start: 20090313, end: 20100203
  3. LEVOTHYROXINE SODIUM [Concomitant]
     Indication: CONGENITAL HYPOTHYROIDISM
     Dosage: UNK
     Route: 048

REACTIONS (1)
  - THYROIDITIS [None]
